FAERS Safety Report 4445378-8 (Version None)
Quarter: 2004Q3

REPORT INFORMATION
  Report Type: 
  Country: None (occurrence: None)
  Receive Date: 20040909
  Receipt Date: 20040903
  Transmission Date: 20050211
  Serious: Yes (Hospitalization, Other)
  Sender: FDA-Public Use
  Company Number: US-MERCK-0409USA00275

PATIENT
  Age: 71 Year
  Sex: Female

DRUGS (5)
  1. LOTREL [Concomitant]
     Route: 065
  2. PLAVIX [Concomitant]
     Route: 065
  3. ZETIA [Concomitant]
     Route: 048
  4. SYNTHROID [Concomitant]
     Route: 065
  5. VIOXX [Suspect]
     Indication: PAIN MANAGEMENT
     Route: 048
     Dates: start: 20010101, end: 20040827

REACTIONS (1)
  - MYOCARDIAL INFARCTION [None]
